FAERS Safety Report 8603107 (Version 2)
Quarter: 2014Q2

REPORT INFORMATION
  Report Type: Report from Study
  Country: US (occurrence: US)
  Receive Date: 20120607
  Receipt Date: 20140617
  Transmission Date: 20141212
  Serious: Yes (Hospitalization)
  Sender: FDA-Public Use
  Company Number: US-ROCHE-1075115

PATIENT
  Age: 56 Year
  Sex: Female
  Weight: 48.2 kg

DRUGS (17)
  1. NAPROXEN [Suspect]
     Indication: PSORIATIC ARTHROPATHY
     Route: 048
     Dates: start: 200410
  2. IBUPROFEN [Suspect]
     Indication: BACK PAIN
     Dosage: PRN
     Route: 065
     Dates: start: 198009
  3. ALCOHOL [Suspect]
     Indication: PRODUCT USED FOR UNKNOWN INDICATION
     Route: 065
  4. CAFFEINE [Suspect]
     Indication: PRODUCT USED FOR UNKNOWN INDICATION
     Route: 065
  5. NIASPAN [Concomitant]
     Route: 065
     Dates: start: 20111013
  6. RED YEAST RICE [Concomitant]
     Route: 065
     Dates: start: 201006
  7. COLECALCIFEROL [Concomitant]
     Route: 065
     Dates: start: 200901
  8. BIOTIN [Concomitant]
     Route: 065
     Dates: start: 200901
  9. DIGESTIVE ENZYMES [Concomitant]
     Route: 065
     Dates: start: 201103
  10. KELPWARE [Concomitant]
     Route: 065
     Dates: start: 201103
  11. FISH OIL [Concomitant]
  12. UBIDECARENONE [Concomitant]
     Route: 065
     Dates: start: 200904
  13. VITAMIN B12 [Concomitant]
     Route: 065
     Dates: start: 200702
  14. VITAMIN C [Concomitant]
     Route: 065
     Dates: start: 198506
  15. VITAMIN B6 [Concomitant]
     Route: 065
     Dates: start: 198506
  16. FOLIC ACID [Concomitant]
     Route: 065
     Dates: start: 198506
  17. TOFACITINIB CITRATE [Suspect]
     Indication: PSORIATIC ARTHROPATHY
     Route: 048
     Dates: start: 20110811, end: 20120809

REACTIONS (7)
  - Oesophageal ulcer haemorrhage [Recovered/Resolved]
  - Diarrhoea haemorrhagic [Unknown]
  - Oesophageal stenosis [Unknown]
  - Hiatus hernia [Unknown]
  - Duodenitis [Unknown]
  - Anaemia [Unknown]
  - Gastritis [Unknown]
